FAERS Safety Report 10341298 (Version 1)
Quarter: 2014Q3

REPORT INFORMATION
  Report Type: Spontaneous
  Country: CA (occurrence: CA)
  Receive Date: 20140725
  Receipt Date: 20140725
  Transmission Date: 20150326
  Serious: Yes (Other)
  Sender: FDA-Public Use
  Company Number: CA-BEH-2014043939

PATIENT
  Age: 67 Year
  Sex: Female
  Weight: 86 kg

DRUGS (3)
  1. PRIVIGEN [Suspect]
     Active Substance: HUMAN IMMUNOGLOBULIN G
     Dosage: 1ST 30 MIN:26 ML/HR;2ND 30 MIN 52 ML/HR;NEXT:200 ML/HR
     Route: 042
     Dates: start: 20140515
  2. PRIVIGEN [Suspect]
     Active Substance: HUMAN IMMUNOGLOBULIN G
     Dosage: 1ST 30 MIN:26 ML/HR;2ND 30 MIN 52 ML/HR;NEXT:200 ML/HR
     Route: 042
     Dates: start: 20140515
  3. PRIVIGEN [Suspect]
     Active Substance: HUMAN IMMUNOGLOBULIN G
     Dates: start: 20140325

REACTIONS (3)
  - Headache [Unknown]
  - Musculoskeletal stiffness [Unknown]
  - Meningitis aseptic [Unknown]

NARRATIVE: CASE EVENT DATE: 20140515
